FAERS Safety Report 10405980 (Version 1)
Quarter: 2014Q3

REPORT INFORMATION
  Report Type: Spontaneous
  Country: FR (occurrence: FR)
  Receive Date: 20140825
  Receipt Date: 20140825
  Transmission Date: 20150326
  Serious: Yes (Death, Life-Threatening, Hospitalization)
  Sender: FDA-Public Use
  Company Number: FR-MERCK-1408FRA012790

PATIENT
  Age: 94 Year
  Sex: Male

DRUGS (3)
  1. INVANZ [Suspect]
     Active Substance: ERTAPENEM SODIUM
     Indication: BACTERAEMIA
     Dosage: 1 G, QD
     Route: 058
     Dates: start: 20140725, end: 20140728
  2. CALCIPARINE [Concomitant]
     Active Substance: HEPARIN CALCIUM
  3. LORAMYC [Concomitant]
     Active Substance: MICONAZOLE

REACTIONS (1)
  - Tonic clonic movements [Fatal]

NARRATIVE: CASE EVENT DATE: 20140728
